FAERS Safety Report 5367450-0 (Version None)
Quarter: 2007Q2

REPORT INFORMATION
  Report Type: 
  Country: None (occurrence: None)
  Receive Date: 20070622
  Receipt Date: 20060906
  Transmission Date: 20071010
  Serious: No
  Sender: FDA-Public Use
  Company Number: US-ASTRAZENECA-2006UW17659

PATIENT
  Age: 52 Year
  Sex: Female
  Weight: 102.1 kg

DRUGS (1)
  1. PULMICORT [Suspect]
     Indication: COUGH
     Route: 055

REACTIONS (2)
  - COUGH [None]
  - INAPPROPRIATE SCHEDULE OF DRUG ADMINISTRATION [None]
